FAERS Safety Report 11262553 (Version 2)
Quarter: 2015Q3

REPORT INFORMATION
  Report Type: Spontaneous
  Country: US (occurrence: US)
  Receive Date: 20150710
  Receipt Date: 20150903
  Transmission Date: 20151125
  Serious: Yes (Death, Hospitalization, Other)
  Sender: FDA-Public Use
  Company Number: US-PFIZER INC-2015229483

PATIENT
  Age: 73 Year
  Sex: Male
  Weight: 59 kg

DRUGS (12)
  1. ADVAIR HFA [Suspect]
     Active Substance: FLUTICASONE PROPIONATE\SALMETEROL XINAFOATE
     Indication: CHRONIC OBSTRUCTIVE PULMONARY DISEASE
     Dosage: 2X/DAY, 500/50 1 INHALATION AM + PM
     Route: 055
     Dates: start: 2012
  2. INDAPAMIDE. [Suspect]
     Active Substance: INDAPAMIDE
     Indication: OEDEMA
     Dosage: 1.25 MG, 1X/DAY (1.25 MG TAB 1 IN AM)
     Dates: start: 2013
  3. POTASSIUM CHLORIDE. [Concomitant]
     Active Substance: POTASSIUM CHLORIDE
     Dosage: 20 MEQ, 2X/DAY (10 MEQ TAB 2 IN AM, 2 IN PM)
  4. SYNTHROID [Concomitant]
     Active Substance: LEVOTHYROXINE SODIUM
     Dosage: 70 ?G, 1X/DAY, (70 MCG TAB 1 IN AM)
  5. REVATIO [Suspect]
     Active Substance: SILDENAFIL CITRATE
     Indication: ASTHENIA
  6. CELEXA [Suspect]
     Active Substance: CITALOPRAM HYDROBROMIDE
     Indication: DEPRESSION
     Dosage: 20 MG 1 IN AM
  7. PRADAXA [Concomitant]
     Active Substance: DABIGATRAN ETEXILATE MESYLATE
     Dosage: 70 MG, 2X/DAY (70 MG TAB 1 IN AM , 1 IN PM)
  8. SPIRIVA [Concomitant]
     Active Substance: TIOTROPIUM BROMIDE MONOHYDRATE
     Dosage: UNK, 1X/DAY (18 POWDER INHALE 1X DAY)
     Route: 055
  9. FUROSEMIDE. [Suspect]
     Active Substance: FUROSEMIDE
     Indication: OEDEMA
     Dosage: 40 MG, 1X/DAY(40MG TABS1 AT NOON)
     Dates: start: 2013
  10. REVATIO [Suspect]
     Active Substance: SILDENAFIL CITRATE
     Indication: CHRONIC OBSTRUCTIVE PULMONARY DISEASE
     Dosage: 20 MG, 3X/DAY
     Route: 048
     Dates: start: 2013
  11. REVATIO [Suspect]
     Active Substance: SILDENAFIL CITRATE
     Indication: CARDIOVASCULAR DISORDER
     Dosage: 40 MG, 3X/DAY
     Route: 048
     Dates: start: 2012
  12. FLONASE [Suspect]
     Active Substance: FLUTICASONE PROPIONATE
     Indication: HYPERSENSITIVITY
     Dosage: 50 ?G, 1X/DAY, 2 SPRAY IN NOSTRILS AM FOR ALLERGIES
     Route: 045
     Dates: start: 2010

REACTIONS (5)
  - Death [Fatal]
  - Therapeutic response unexpected [Unknown]
  - Off label use [Unknown]
  - Cardiac disorder [Unknown]
  - Pre-existing condition improved [Unknown]

NARRATIVE: CASE EVENT DATE: 2012
